FAERS Safety Report 9915663 (Version 1)
Quarter: 2014Q1

REPORT INFORMATION
  Report Type: Spontaneous
  Country: US (occurrence: None)
  Receive Date: 20140219
  Receipt Date: 20140219
  Transmission Date: 20141002
  Serious: Yes (Other)
  Sender: FDA-Public Use
  Company Number: None

PATIENT
  Age: 59 Year
  Sex: Female
  Weight: 88.45 kg

DRUGS (6)
  1. TOPIRAMATE [Suspect]
     Indication: WEIGHT CONTROL
     Dosage: 2MG 1 PILL QAM ORAL
     Route: 048
     Dates: start: 20131111, end: 20131121
  2. LOSARTAN [Concomitant]
  3. ADVAIR [Concomitant]
  4. ZYRTEC [Concomitant]
  5. SYNTHROID [Concomitant]
  6. OMEPRAZOLE [Concomitant]

REACTIONS (4)
  - Sudden visual loss [None]
  - Eye pain [None]
  - Vomiting [None]
  - Corneal oedema [None]
